FAERS Safety Report 20923460 (Version 1)
Quarter: 2022Q2

REPORT INFORMATION
  Report Type: Spontaneous
  Country: US (occurrence: None)
  Receive Date: 20220606
  Receipt Date: 20220606
  Transmission Date: 20220721
  Serious: Yes (Hospitalization)
  Sender: FDA-Public Use
  Company Number: None

PATIENT
  Age: 64 Year
  Sex: Female

DRUGS (1)
  1. AUBAGIO [Suspect]
     Active Substance: TERIFLUNOMIDE
     Indication: Cerebral ischaemia
     Dosage: FREQUENCY : DAILY;?
     Route: 048
     Dates: start: 202105

REACTIONS (2)
  - Eye inflammation [None]
  - Osteoporosis [None]

NARRATIVE: CASE EVENT DATE: 20220530
